FAERS Safety Report 10086505 (Version 3)
Quarter: 2014Q2

REPORT INFORMATION
  Report Type: Spontaneous
  Country: US (occurrence: US)
  Receive Date: 20140418
  Receipt Date: 20140513
  Transmission Date: 20141212
  Serious: No
  Sender: FDA-Public Use
  Company Number: US-PFIZER INC-2014107875

PATIENT
  Age: 4 Year
  Sex: Male
  Weight: 12.7 kg

DRUGS (3)
  1. GENOTROPIN [Suspect]
     Indication: GROWTH HORMONE DEFICIENCY
     Dosage: 0.3 MG/KG, 6 H DF, WEEKLY
     Route: 058
     Dates: start: 20140408, end: 20140415
  2. GENOTROPIN [Suspect]
     Indication: DWARFISM
     Dosage: 3.7 MG, WEEKLY (0.6 MG 5 DAYS PER WEEK, 0.7 MG ONE DAY PER WEEK)
     Route: 058
     Dates: start: 20140410
  3. ZYRTEC [Concomitant]
     Dosage: 5 MG, DAILY
     Route: 048

REACTIONS (4)
  - Vomiting [Unknown]
  - Diarrhoea [Unknown]
  - Anxiety [Unknown]
  - Headache [Not Recovered/Not Resolved]
